FAERS Safety Report 13291382 (Version 1)
Quarter: 2017Q1

REPORT INFORMATION
  Report Type: Spontaneous
  Country: US (occurrence: US)
  Receive Date: 20170302
  Receipt Date: 20170302
  Transmission Date: 20170428
  Serious: No
  Sender: FDA-Public Use
  Company Number: US-PERRIGO-16US019338

PATIENT
  Age: 87 Year
  Sex: Female
  Weight: 45.35 kg

DRUGS (2)
  1. ANTIBIOTICS [Suspect]
     Active Substance: UNSPECIFIED INGREDIENT
     Indication: INFLAMMATION
     Dosage: UNKNOWN, SINGLE
     Route: 048
     Dates: start: 201607, end: 201607
  2. LOPERAMIDE HYDROCHLORIDE. [Suspect]
     Active Substance: LOPERAMIDE HYDROCHLORIDE
     Indication: PROPHYLAXIS AGAINST DIARRHOEA
     Dosage: 2 MG, SINGLE
     Route: 048
     Dates: start: 201607, end: 201607

REACTIONS (4)
  - Malaise [Unknown]
  - Off label use [Recovered/Resolved]
  - Erythema [Unknown]
  - Lip swelling [Unknown]

NARRATIVE: CASE EVENT DATE: 201607
